FAERS Safety Report 5132973-6 (Version None)
Quarter: 2006Q4

REPORT INFORMATION
  Report Type: 
  Country: None (occurrence: None)
  Receive Date: 20061017
  Receipt Date: 20060913
  Transmission Date: 20070319
  Serious: Yes (Life-Threatening)
  Sender: FDA-Public Use
  Company Number: 2006-148726-NL

PATIENT
  Age: 31 Year
  Sex: Male

DRUGS (11)
  1. DANAPAROID SODIUM [Suspect]
     Indication: DISSEMINATED INTRAVASCULAR COAGULATION
     Dosage: 2500 ANTI_XA; INTRAVENOUS (NOS)
     Route: 042
     Dates: start: 20040819, end: 20040819
  2. GABEXATE MESILATE [Concomitant]
  3. ANTITHROMBIN III [Concomitant]
  4. CEPROFLOXACIN HYDROCHLORIDE [Concomitant]
  5. VANCOMYCIN [Concomitant]
  6. ISEPAMICIN SULFATE [Concomitant]
  7. PRODIF [Concomitant]
  8. FAMOTIDINE [Concomitant]
  9. NEUPOGEN [Concomitant]
  10. IMMUNOGLOBULINS [Concomitant]
  11. BACTRIM [Concomitant]

REACTIONS (1)
  - MELAENA [None]
